FAERS Safety Report 18798417 (Version 1)
Quarter: 2021Q1

REPORT INFORMATION
  Report Type: Other
  Country: IN (occurrence: IN)
  Receive Date: 20210128
  Receipt Date: 20210128
  Transmission Date: 20210419
  Serious: Yes (Death, Hospitalization, Other)
  Sender: FDA-Public Use
  Company Number: IN-ASTELLAS-2021US003033

PATIENT
  Age: 5 Year
  Sex: Male

DRUGS (4)
  1. RED BLOOD CELLS [Concomitant]
     Active Substance: HUMAN RED BLOOD CELL
     Indication: PRODUCT USED FOR UNKNOWN INDICATION
     Dosage: UNK UNK, UNKNOWN FREQ.
     Route: 065
  2. SODIUM ANTIMONY GLUCONATE [Interacting]
     Active Substance: SODIUM ANTIMONYLGLUCONATE
     Indication: VISCERAL LEISHMANIASIS
     Route: 065
  3. AMPHOTERICIN B, LIPOSOME [Interacting]
     Active Substance: AMPHOTERICIN B
     Route: 042
  4. AMPHOTERICIN B, LIPOSOME [Suspect]
     Active Substance: AMPHOTERICIN B
     Indication: VISCERAL LEISHMANIASIS
     Dosage: 0.25 MG/KG, ONCE DAILY
     Route: 042

REACTIONS (3)
  - Off label use [Recovered/Resolved]
  - Cardiac arrest [Fatal]
  - Drug interaction [Unknown]
